FAERS Safety Report 5900376-X (Version None)
Quarter: 2008Q3

REPORT INFORMATION
  Report Type: 
  Country: None (occurrence: None)
  Receive Date: 20080926
  Receipt Date: 20080916
  Transmission Date: 20090109
  Serious: Yes (Other)
  Sender: FDA-Public Use
  Company Number: US-PFIZER INC-2006126917

PATIENT
  Sex: Male
  Weight: 115.2 kg

DRUGS (19)
  1. CHANTIX [Suspect]
     Indication: SMOKING CESSATION THERAPY
     Dates: start: 20061010, end: 20061011
  2. CHANTIX [Suspect]
     Dates: start: 20080701
  3. ALL OTHER THERAPEUTIC PRODUCTS [Concomitant]
  4. MONTELUKAST SODIUM [Concomitant]
  5. TRAZODONE HCL [Concomitant]
  6. LOVASTATIN [Concomitant]
  7. FLUOXETINE [Concomitant]
  8. DOXYCYCLINE [Concomitant]
  9. TENIDAP SODIUM [Concomitant]
  10. TAMSULOSIN HCL [Concomitant]
  11. METFORMIN HCL [Concomitant]
  12. LISINOPRIL [Concomitant]
  13. TRAMADOL HCL [Concomitant]
  14. DICLOFENAC [Concomitant]
  15. DEPAKOTE [Concomitant]
  16. ACTOS [Concomitant]
  17. CELEBREX [Concomitant]
  18. TRICOR [Concomitant]
  19. BYETTA [Concomitant]

REACTIONS (12)
  - ABNORMAL DREAMS [None]
  - DRUG DEPENDENCE [None]
  - FATIGUE [None]
  - FEAR [None]
  - HALLUCINATION [None]
  - HEADACHE [None]
  - NAUSEA [None]
  - NERVOUSNESS [None]
  - PARANOIA [None]
  - STOMACH DISCOMFORT [None]
  - TREMOR [None]
  - VOMITING [None]
